FAERS Safety Report 11701741 (Version 1)
Quarter: 2015Q4

REPORT INFORMATION
  Report Type: Spontaneous
  Country: US (occurrence: US)
  Receive Date: 20151105
  Receipt Date: 20151105
  Transmission Date: 20160304
  Serious: No
  Sender: FDA-Public Use
  Company Number: US-MALLINCKRODT-T201502781

PATIENT
  Age: 65 Year
  Sex: Female
  Weight: 77 kg

DRUGS (2)
  1. FENTANYL TRANSDERMAL SYSTEM [Suspect]
     Active Substance: FENTANYL
     Indication: BACK PAIN
     Dosage: 25 MCG/HR, Q72HRS
     Route: 062
     Dates: start: 20150505
  2. FENTANYL. [Concomitant]
     Active Substance: FENTANYL
     Indication: BACK PAIN
     Dosage: 12.5 MCG/HR
     Dates: start: 201504, end: 201505

REACTIONS (4)
  - Nausea [Recovered/Resolved]
  - Drug dose omission [Recovered/Resolved]
  - Drug ineffective [Not Recovered/Not Resolved]
  - Urticaria [Not Recovered/Not Resolved]

NARRATIVE: CASE EVENT DATE: 201505
